FAERS Safety Report 19847686 (Version 1)
Quarter: 2021Q3

REPORT INFORMATION
  Report Type: Report from Study
  Country: FR (occurrence: FR)
  Receive Date: 20210917
  Receipt Date: 20210917
  Transmission Date: 20211014
  Serious: Yes (Hospitalization, Other)
  Sender: FDA-Public Use
  Company Number: FR-SERVIER-S20003523

PATIENT

DRUGS (7)
  1. PEGASPARGASE [Suspect]
     Active Substance: PEGASPARGASE
     Indication: ACUTE LYMPHOCYTIC LEUKAEMIA
     Dosage: 2775 IU, D12
     Route: 042
     Dates: start: 20200327, end: 20200327
  2. TN UNSPECIFIED [VINCRISTINE SULFATE] [Suspect]
     Active Substance: VINCRISTINE SULFATE
     Indication: ACUTE LYMPHOCYTIC LEUKAEMIA
     Dosage: 1.6 MG, D8,D15,D22, D29
     Route: 042
     Dates: start: 20200323, end: 20200413
  3. TN UNSPECIFIED [DAUNORUBICIN] [Suspect]
     Active Substance: DAUNORUBICIN
     Indication: ACUTE LYMPHOCYTIC LEUKAEMIA
     Dosage: 33 MG, D 18, D15, D22, D29
     Route: 042
     Dates: start: 20200323, end: 20200413
  4. TN UNSPECIFIED [HYDROCORTISONE] [Suspect]
     Active Substance: HYDROCORTISONE
     Indication: ACUTE LYMPHOCYTIC LEUKAEMIA
     Dosage: 15 MG, D9, D13, D18 AND D24
     Route: 037
     Dates: start: 20200324, end: 20200410
  5. TN UNSPECIFIED [METHOTREXATE] [Suspect]
     Active Substance: METHOTREXATE
     Indication: ACUTE LYMPHOCYTIC LEUKAEMIA
     Dosage: 15 MG, D9, D13, D18 AND D24
     Route: 037
     Dates: start: 20200324, end: 20200410
  6. TN UNSPECIFIED [CYTARABINE] [Suspect]
     Active Substance: CYTARABINE
     Indication: ACUTE LYMPHOCYTIC LEUKAEMIA
     Dosage: 30 MG, D9, D13, D18 AND D24
     Route: 037
     Dates: start: 20200324, end: 20200410
  7. TN UNSPECIFIED [PREDNISOLONE] [Concomitant]
     Active Substance: PREDNISOLONE
     Indication: ACUTE LYMPHOCYTIC LEUKAEMIA
     Dosage: 70 MG, D8 TO D28
     Route: 048
     Dates: start: 20200328, end: 20200409

REACTIONS (6)
  - Herpes virus infection [Recovered/Resolved]
  - Gastritis [Recovered/Resolved]
  - Weight decreased [Recovered/Resolved]
  - Hyperbilirubinaemia [Recovered/Resolved]
  - Hypofibrinogenaemia [Recovered/Resolved]
  - Hyponatraemia [Recovered/Resolved]

NARRATIVE: CASE EVENT DATE: 20200403
